FAERS Safety Report 7598883-X (Version None)
Quarter: 2011Q3

REPORT INFORMATION
  Report Type: 
  Country: None (occurrence: None)
  Receive Date: 20110711
  Receipt Date: 20110629
  Transmission Date: 20111222
  Serious: No
  Sender: FDA-Public Use
  Company Number: US-BIOGENIDEC-2011BI024223

PATIENT
  Age: 60 Year
  Sex: Female

DRUGS (2)
  1. TYSABRI [Suspect]
     Indication: MULTIPLE SCLEROSIS
     Route: 042
     Dates: start: 20080514, end: 20110516
  2. AVONEX [Concomitant]
     Indication: MULTIPLE SCLEROSIS
     Route: 030
     Dates: start: 20030101, end: 20080101

REACTIONS (8)
  - TREMOR [None]
  - BALANCE DISORDER [None]
  - PAIN [None]
  - BLOOD PRESSURE INCREASED [None]
  - DIZZINESS [None]
  - SENSATION OF PRESSURE [None]
  - MUSCULOSKELETAL DISORDER [None]
  - MUSCLE SPASMS [None]
